FAERS Safety Report 12263395 (Version 1)
Quarter: 2016Q2

REPORT INFORMATION
  Report Type: Spontaneous
  Country: US (occurrence: None)
  Receive Date: 20160412
  Receipt Date: 20160412
  Transmission Date: 20160815
  Serious: Yes (Other)
  Sender: FDA-Public Use
  Company Number: None

PATIENT
  Age: 3 Month
  Sex: Female
  Weight: 7.71 kg

DRUGS (1)
  1. FIRST OMEPRAZOLE RX [Suspect]
     Active Substance: OMEPRAZOLE
     Indication: GASTROOESOPHAGEAL REFLUX DISEASE
     Dosage: 3 OUNCE (S) TWICE A DAY TAKEN BY MOUTH
     Route: 048
     Dates: start: 20160311, end: 20160411

REACTIONS (5)
  - Gastrooesophageal reflux disease [None]
  - Drug administration error [None]
  - Drug dispensing error [None]
  - Disease recurrence [None]
  - Product preparation error [None]

NARRATIVE: CASE EVENT DATE: 20160411
